FAERS Safety Report 6403076-5 (Version None)
Quarter: 2009Q4

REPORT INFORMATION
  Report Type: 
  Country: None (occurrence: None)
  Receive Date: 20091016
  Receipt Date: 20091008
  Transmission Date: 20100525
  Serious: Yes (Hospitalization)
  Sender: FDA-Public Use
  Company Number: FR-BAYER-200935414GPV

PATIENT
  Age: 66 Year
  Sex: Male

DRUGS (3)
  1. CIFLOX [Suspect]
     Indication: PROSTATITIS
     Dosage: TOTAL DAILY DOSE: 1000 MG  UNIT DOSE: 500 MG
     Route: 048
     Dates: start: 20090202, end: 20090204
  2. GENTAMICINE [Suspect]
     Indication: PROSTATITIS
     Route: 030
     Dates: start: 20090202, end: 20090204
  3. XATRAL [Concomitant]
     Indication: DRUG USE FOR UNKNOWN INDICATION
     Route: 048

REACTIONS (5)
  - APHTHOUS STOMATITIS [None]
  - BALANOPOSTHITIS [None]
  - CONJUNCTIVITIS [None]
  - EYE IRRITATION [None]
  - INTERTRIGO [None]
